FAERS Safety Report 24660604 (Version 1)
Quarter: 2024Q4

REPORT INFORMATION
  Report Type: Report from Study
  Country: GB (occurrence: GB)
  Receive Date: 20241125
  Receipt Date: 20241125
  Transmission Date: 20250115
  Serious: Yes (Other)
  Sender: ELI LILLY AND COMPANY
  Company Number: GB-ELI_LILLY_AND_COMPANY-GB202411010776

PATIENT
  Age: 65 Year
  Sex: Female

DRUGS (1)
  1. OLUMIANT [Suspect]
     Active Substance: BARICITINIB
     Indication: Rheumatoid arthritis
     Dosage: 4 MG, EACH MORNING
     Route: 048

REACTIONS (7)
  - Neoplasm malignant [Not Recovered/Not Resolved]
  - Skin cancer [Not Recovered/Not Resolved]
  - COVID-19 [Not Recovered/Not Resolved]
  - Gait disturbance [Not Recovered/Not Resolved]
  - Joint effusion [Not Recovered/Not Resolved]
  - Myalgia [Not Recovered/Not Resolved]
  - Herpes zoster [Not Recovered/Not Resolved]
